FAERS Safety Report 7908670-8 (Version None)
Quarter: 2011Q4

REPORT INFORMATION
  Report Type: 
  Country: None (occurrence: None)
  Receive Date: 20111111
  Receipt Date: 20111101
  Transmission Date: 20120403
  Serious: Yes (Other)
  Sender: FDA-Public Use
  Company Number: PHHY2009BR25797

PATIENT
  Sex: Female
  Weight: 55 kg

DRUGS (8)
  1. EXELON [Suspect]
     Dosage: 18MG/10CM2 (1 PATCH A DAY)
     Route: 062
  2. LIPITOR [Concomitant]
     Indication: BLOOD CHOLESTEROL ABNORMAL
     Dosage: 1 DF, DAILY
     Route: 048
  3. PANTOPRAZOLE [Concomitant]
     Indication: GASTRITIS
     Dosage: 1 DF, DAILY
     Route: 048
  4. CITALOPRAM HYDROBROMIDE [Concomitant]
     Dosage: 1 DF, BID
     Route: 048
  5. SOMALGIN [Concomitant]
     Indication: COAGULOPATHY
     Dosage: 1 DF, DAILY
     Route: 048
     Dates: start: 20110501
  6. FLUTICASONE PROPIONATE/SALMETEROL [Concomitant]
     Indication: BRONCHIECTASIS
     Dosage: 1 DF, BID (ONE INHALATION TWICE A DAY
  7. EXELON [Suspect]
     Indication: NERVOUS SYSTEM DISORDER
     Dosage: 9MG/5CM2 (1 PATCH A DAY)
     Route: 062
  8. MEMANTINE HYDROCHLORIDE [Concomitant]
     Indication: HYPOKINESIA
     Dosage: 1 DF, BID
     Route: 048

REACTIONS (4)
  - HYPERSENSITIVITY [None]
  - APPLICATION SITE URTICARIA [None]
  - URTICARIA [None]
  - DERMATITIS CONTACT [None]
